FAERS Safety Report 22094075 (Version 1)
Quarter: 2023Q1

REPORT INFORMATION
  Report Type: Spontaneous
  Country: US (occurrence: US)
  Receive Date: 20230314
  Receipt Date: 20230314
  Transmission Date: 20230418
  Serious: No
  Sender: FDA-Public Use
  Company Number: US-Dermavant-000306

PATIENT
  Age: 23 Year
  Sex: Male

DRUGS (1)
  1. TAPINAROF [Suspect]
     Active Substance: TAPINAROF
     Indication: Psoriasis
     Dosage: APPLIED DAILY
     Route: 061
     Dates: start: 20221107

REACTIONS (1)
  - Application site folliculitis [Not Recovered/Not Resolved]

NARRATIVE: CASE EVENT DATE: 20221101
